FAERS Safety Report 9711777 (Version 2)
Quarter: 2014Q2

REPORT INFORMATION
  Report Type: Spontaneous
  Country: US (occurrence: US)
  Receive Date: 20131126
  Receipt Date: 20140510
  Transmission Date: 20141212
  Serious: No
  Sender: FDA-Public Use
  Company Number: US-BRISTOL-MYERS SQUIBB COMPANY-18817742

PATIENT
  Age: 70 Year
  Sex: Female
  Weight: 65.76 kg

DRUGS (3)
  1. BYDUREON [Suspect]
     Dosage: LOT#73227,EXP:FEB-2016
  2. GLIPIZIDE [Concomitant]
  3. METFORMIN [Concomitant]

REACTIONS (4)
  - Injection site swelling [Recovered/Resolved]
  - Injection site pain [Unknown]
  - Injection site haemorrhage [Unknown]
  - Product quality issue [Unknown]
